FAERS Safety Report 8763973 (Version 1)
Quarter: 2012Q4

REPORT INFORMATION
  Report Type: 
  Country: US (occurrence: US)
  Receive Date: 20120831
  Receipt Date: 20120831
  Transmission Date: 20130627
  Serious: No
  Sender: FDA-Public Use
  Company Number: US-BAYER-2012-071485

PATIENT
  Sex: Female

DRUGS (2)
  1. DESONATE GEL [Suspect]
     Indication: DRY SKIN
     Route: 061
  2. DESONATE GEL [Suspect]
     Indication: ERYTHEMA

REACTIONS (1)
  - Erythema [None]
